FAERS Safety Report 17030866 (Version 1)
Quarter: 2019Q4

REPORT INFORMATION
  Report Type: Report from Study
  Country: GB (occurrence: GB)
  Receive Date: 20191114
  Receipt Date: 20191114
  Transmission Date: 20200122
  Serious: Yes (Other)
  Sender: FDA-Public Use
  Company Number: PHHY2019GB194428

PATIENT
  Sex: Male

DRUGS (1)
  1. MIDOSTAURIN [Suspect]
     Active Substance: MIDOSTAURIN
     Indication: SYSTEMIC MASTOCYTOSIS
     Dosage: UNK
     Route: 065

REACTIONS (8)
  - Arrhythmia [Unknown]
  - Oxygen saturation decreased [Unknown]
  - Ventricular extrasystoles [Unknown]
  - Hepatic enzyme increased [Recovered/Resolved]
  - Hyperhidrosis [Unknown]
  - Liver disorder [Unknown]
  - Malaise [Unknown]
  - Nausea [Unknown]
